FAERS Safety Report 20469346 (Version 1)
Quarter: 2022Q1

REPORT INFORMATION
  Report Type: Spontaneous
  Country: CO (occurrence: CO)
  Receive Date: 20220214
  Receipt Date: 20220214
  Transmission Date: 20220423
  Serious: Yes (Other)
  Sender: FDA-Public Use
  Company Number: CO-BAYER-2022A021430

PATIENT

DRUGS (1)
  1. RIOCIGUAT [Suspect]
     Active Substance: RIOCIGUAT
     Dosage: UNK

REACTIONS (3)
  - Gastrointestinal haemorrhage [None]
  - Haemorrhage urinary tract [None]
  - Ecchymosis [None]

NARRATIVE: CASE EVENT DATE: 20220201
